FAERS Safety Report 25570160 (Version 1)
Quarter: 2025Q3

REPORT INFORMATION
  Report Type: Spontaneous
  Country: EU (occurrence: EU)
  Receive Date: 20250717
  Receipt Date: 20250717
  Transmission Date: 20251021
  Serious: Yes (Hospitalization, Other)
  Sender: JOHNSON AND JOHNSON
  Company Number: None

PATIENT
  Age: 39 Year
  Sex: Female

DRUGS (1)
  1. METHYLPHENIDATE HYDROCHLORIDE [Suspect]
     Active Substance: METHYLPHENIDATE HYDROCHLORIDE
     Indication: Disturbance in attention
     Route: 048
     Dates: start: 20250216, end: 20250624

REACTIONS (10)
  - Headache [Unknown]
  - Hypertension [Recovering/Resolving]
  - Vomiting [Unknown]
  - Nausea [Unknown]
  - Hyperaldosteronism [Unknown]
  - Hypokalaemia [Recovered/Resolved]
  - Tinnitus [Unknown]
  - Myalgia [Unknown]
  - Ocular hyperaemia [Unknown]
  - Dyspnoea [Unknown]

NARRATIVE: CASE EVENT DATE: 20250101
